FAERS Safety Report 11347194 (Version 1)
Quarter: 2015Q3

REPORT INFORMATION
  Report Type: Spontaneous
  Country: US (occurrence: US)
  Receive Date: 20150803
  Receipt Date: 20150803
  Transmission Date: 20151125
  Serious: No
  Sender: FDA-Public Use
  Company Number: US-ELI_LILLY_AND_COMPANY-US201104005082

PATIENT
  Age: 85 Year
  Weight: 63.49 kg

DRUGS (5)
  1. ZYPREXA [Suspect]
     Active Substance: OLANZAPINE
     Indication: DEMENTIA ALZHEIMER^S TYPE
     Dosage: 2.5 MG, QD
  2. EXELON [Concomitant]
     Active Substance: RIVASTIGMINE TARTRATE
  3. NAMENDA [Concomitant]
     Active Substance: MEMANTINE HYDROCHLORIDE
  4. DULCOLAX (BISACODYL) [Concomitant]
     Active Substance: BISACODYL
  5. ZYPREXA [Suspect]
     Active Substance: OLANZAPINE
     Dosage: 1.5 DF, QD

REACTIONS (9)
  - Thinking abnormal [Unknown]
  - Memory impairment [Unknown]
  - Off label use [Unknown]
  - Gait disturbance [Unknown]
  - Anxiety [Unknown]
  - Fatigue [Unknown]
  - Middle insomnia [Unknown]
  - Delirium [Unknown]
  - Wrong technique in product usage process [Unknown]
